FAERS Safety Report 17988744 (Version 1)
Quarter: 2020Q3

REPORT INFORMATION
  Report Type: Spontaneous
  Country: US (occurrence: US)
  Receive Date: 20200707
  Receipt Date: 20200707
  Transmission Date: 20201103
  Serious: No
  Sender: FDA-Public Use
  Company Number: US-AMGEN-USASP2020106342

PATIENT
  Age: 55 Year
  Sex: Female

DRUGS (5)
  1. HYDROCHLOROTHIAZIDE. [Concomitant]
     Active Substance: HYDROCHLOROTHIAZIDE
     Dosage: UNK
  2. OTEZLA [Suspect]
     Active Substance: APREMILAST
     Indication: PRODUCT USED FOR UNKNOWN INDICATION
     Dosage: 30 MILLIGRAM, BID
     Route: 048
     Dates: start: 20180420
  3. MONTELUCAST [Concomitant]
     Active Substance: MONTELUKAST SODIUM
     Dosage: UNK
  4. OLMESARTAN MEDOXOMIL. [Concomitant]
     Active Substance: OLMESARTAN MEDOXOMIL
     Dosage: UNK
  5. METFORMIN [Concomitant]
     Active Substance: METFORMIN HYDROCHLORIDE
     Dosage: UNK

REACTIONS (1)
  - Therapeutic product effect incomplete [Not Recovered/Not Resolved]

NARRATIVE: CASE EVENT DATE: 20200629
